FAERS Safety Report 10408399 (Version 4)
Quarter: 2014Q3

REPORT INFORMATION
  Report Type: Report from Study
  Country: JP (occurrence: JP)
  Receive Date: 20140826
  Receipt Date: 20140919
  Transmission Date: 20150326
  Serious: Yes (Death)
  Sender: FDA-Public Use
  Company Number: JP-ROCHE-1447290

PATIENT
  Age: 75 Year
  Sex: Male

DRUGS (10)
  1. PLAVIX [Concomitant]
     Active Substance: CLOPIDOGREL BISULFATE
     Indication: THROMBOSIS PROPHYLAXIS
     Dosage: DOSAGE IS UNCERTAIN.
     Route: 048
     Dates: start: 20110712
  2. CINACALCET HYDROCHLORIDE [Concomitant]
     Active Substance: CINACALCET HYDROCHLORIDE
     Indication: GLOMERULONEPHRITIS
     Route: 048
     Dates: start: 20120515
  3. FESIN (JAPAN) [Concomitant]
     Indication: NEPHROGENIC ANAEMIA
     Route: 065
     Dates: start: 20131205
  4. ROCALTROL [Concomitant]
     Active Substance: CALCITRIOL
     Indication: GLOMERULONEPHRITIS
     Route: 065
     Dates: start: 20130813
  5. BONVIVA [Concomitant]
     Active Substance: IBANDRONATE SODIUM
     Indication: OSTEOPOROSIS
     Route: 042
     Dates: start: 20131210
  6. NAUZELIN [Concomitant]
     Active Substance: DOMPERIDONE
     Indication: GASTRITIS
     Dosage: DOSAGE IS UNCERTAIN.
     Route: 048
     Dates: start: 20120124
  7. FOSRENOL [Concomitant]
     Active Substance: LANTHANUM CARBONATE
     Indication: HYPERPHOSPHATAEMIA
     Dosage: DOSAGE IS UNCERTAIN.
     Route: 048
     Dates: start: 20130423
  8. METHOXY POLYETHYLENE GLYCOL-EPOETIN BETA [Suspect]
     Active Substance: PEGZEREPOETIN ALFA
     Indication: NEPHROGENIC ANAEMIA
     Route: 058
     Dates: start: 20130813, end: 20140410
  9. GASTER (JAPAN) [Concomitant]
     Indication: GASTRITIS
     Dosage: DOSAGE IS UNCERTAIN.
     Route: 048
     Dates: start: 20130716
  10. LIVALO [Concomitant]
     Active Substance: PITAVASTATIN CALCIUM
     Indication: HYPERLIPIDAEMIA
     Route: 048
     Dates: start: 20130813

REACTIONS (1)
  - Cerebral infarction [Fatal]

NARRATIVE: CASE EVENT DATE: 20131210
